FAERS Safety Report 9085799 (Version 1)
Quarter: 2013Q1

REPORT INFORMATION
  Report Type: Report from Study
  Country: US (occurrence: US)
  Receive Date: 20130131
  Receipt Date: 20130131
  Transmission Date: 20140127
  Serious: No
  Sender: FDA-Public Use
  Company Number: US-ABBOTT-12P-163-0995727-00

PATIENT
  Age: 67 Year
  Sex: Female

DRUGS (10)
  1. HUMIRA [Suspect]
     Indication: PSORIASIS
     Dates: start: 20120724
  2. SIMVASTATIN [Concomitant]
     Indication: BLOOD CHOLESTEROL INCREASED
     Dosage: 80 MG DAILY
  3. ATENOLOL [Concomitant]
     Indication: HYPERTENSION
     Dosage: 50 MG DAILY
  4. DOXEPIN HCL [Concomitant]
     Indication: HYPERTENSION
     Dosage: 25 MG DAILY
  5. METFORMIN [Concomitant]
     Indication: DIABETES MELLITUS
  6. FUROSEMIDE [Concomitant]
     Indication: DIURETIC THERAPY
     Dosage: 40 MG, 1/2 TAB IN AM AND 1/2 TAB AT NIGHT
  7. ASA [Concomitant]
     Indication: PROPHYLAXIS
     Dosage: 81 MG DAILY
  8. FOLIC ACID [Concomitant]
     Indication: PRODUCT USED FOR UNKNOWN INDICATION
     Dosage: 400 MG DAILY
  9. DIOVAN HCT [Concomitant]
     Indication: HYPERTENSION
     Dosage: 160MG/25MG DAILY
  10. LORATADINE [Concomitant]
     Indication: HYPERSENSITIVITY
     Dosage: 10 MG DAILY, AS NEEDED

REACTIONS (1)
  - Psoriasis [Recovering/Resolving]
